FAERS Safety Report 18503533 (Version 2)
Quarter: 2022Q4

REPORT INFORMATION
  Report Type: Report from Study
  Country: GB (occurrence: GB)
  Receive Date: 20201113
  Receipt Date: 20221205
  Transmission Date: 20230113
  Serious: Yes (Death)
  Sender: FDA-Public Use
  Company Number: GB-PFIZER INC-2020447184

PATIENT

DRUGS (5)
  1. DOXORUBICIN [Suspect]
     Active Substance: DOXORUBICIN
     Indication: Lymphoproliferative disorder
     Dosage: UNK, CYCLIC(COMPLETED AT LEAST 6 CYCLES)
  2. VINCRISTINE SULFATE [Suspect]
     Active Substance: VINCRISTINE SULFATE
     Indication: Lymphoproliferative disorder
     Dosage: UNK, CYCLIC(COMPLETED AT LEAST 6 CYCLES)
  3. RITUXIMAB [Suspect]
     Active Substance: RITUXIMAB
     Indication: Lymphoproliferative disorder
     Dosage: 375 MG/M2, CYCLIC(RECEIVED 8 INFUSIONS)
     Route: 042
  4. CYCLOPHOSPHAMIDE [Suspect]
     Active Substance: CYCLOPHOSPHAMIDE
     Indication: Lymphoproliferative disorder
     Dosage: UNK, CYCLIC(COMPLETED AT LEAST 6 CYCLES)
  5. PREDNISOLONE [Suspect]
     Active Substance: PREDNISOLONE
     Indication: Lymphoproliferative disorder
     Dosage: UNK, CYCLIC(COMPLETED AT LEAST 6 CYCLES)

REACTIONS (1)
  - Neutropenic infection [Fatal]
